FAERS Safety Report 8058943-6 (Version None)
Quarter: 2012Q1

REPORT INFORMATION
  Report Type: 
  Country: None (occurrence: None)
  Receive Date: 20120119
  Receipt Date: 20120119
  Transmission Date: 20120608
  Serious: Yes (Hospitalization)
  Sender: FDA-Public Use
  Company Number: None

PATIENT
  Age: 84 Year
  Sex: Male
  Weight: 75.7 kg

DRUGS (12)
  1. CARVEDILOL [Concomitant]
  2. LIPITOR [Concomitant]
  3. TAMSULOSIN HCL [Concomitant]
  4. ONE A DAY [Concomitant]
  5. FOLIC ACID [Concomitant]
  6. LEXAPRO [Concomitant]
  7. AVODART [Concomitant]
  8. ACIDOPHILUS [Concomitant]
  9. CALCIUM + VIT D [Concomitant]
  10. COUMADIN [Suspect]
     Indication: ATRIAL FIBRILLATION
     Dosage: 5 MG / 2.5MG WSAT/SMTTHF PO CHRONIC
     Route: 048
  11. ASPIRIN [Suspect]
     Indication: CEREBROVASCULAR ACCIDENT
     Dosage: 81 MG DAILY PO CHRONIC
     Route: 048
  12. NIFEREX [Concomitant]

REACTIONS (6)
  - RENAL FAILURE ACUTE [None]
  - OBSTRUCTION [None]
  - UPPER GASTROINTESTINAL HAEMORRHAGE [None]
  - DUODENITIS [None]
  - INTERNATIONAL NORMALISED RATIO INCREASED [None]
  - GASTRIC ULCER [None]
